FAERS Safety Report 6615560-X (Version None)
Quarter: 2010Q1

REPORT INFORMATION
  Report Type: 
  Country: None (occurrence: None)
  Receive Date: 20100305
  Receipt Date: 20100301
  Transmission Date: 20100710
  Serious: Yes (Death, Hospitalization)
  Sender: FDA-Public Use
  Company Number: JP-BAYER-200915196BYL

PATIENT
  Age: 82 Year
  Sex: Male

DRUGS (1)
  1. NEXAVAR [Suspect]
     Indication: HEPATIC NEOPLASM MALIGNANT
     Dosage: TOTAL DAILY DOSE: 600 MG  UNIT DOSE: 200 MG
     Route: 048
     Dates: start: 20091118, end: 20091218

REACTIONS (2)
  - HEPATIC NEOPLASM MALIGNANT [None]
  - PORTAL VEIN THROMBOSIS [None]
